FAERS Safety Report 5164327-0 (Version None)
Quarter: 2006Q4

REPORT INFORMATION
  Report Type: 
  Country: None (occurrence: None)
  Receive Date: 20061127
  Receipt Date: 20061127
  Transmission Date: 20070319
  Serious: Yes (Hospitalization, Other)
  Sender: FDA-Public Use
  Company Number: None

PATIENT
  Age: 54 Year
  Sex: Male

DRUGS (5)
  1. DILANTIN [Suspect]
     Dosage: 200 MG BID PO
     Route: 048
  2. TRILEPTAL [Suspect]
  3. ACCUPRIL [Concomitant]
  4. TOPROL-XL [Concomitant]
  5. COUMADIN [Concomitant]

REACTIONS (3)
  - BLOOD OSMOLARITY DECREASED [None]
  - DRUG INTERACTION [None]
  - HYPONATRAEMIA [None]
